FAERS Safety Report 24966822 (Version 1)
Quarter: 2025Q1

REPORT INFORMATION
  Report Type: Spontaneous
  Country: US (occurrence: US)
  Receive Date: 20250213
  Receipt Date: 20250213
  Transmission Date: 20250409
  Serious: No
  Sender: ELI LILLY AND COMPANY
  Company Number: US-ELI_LILLY_AND_COMPANY-US202502007531

PATIENT
  Sex: Female

DRUGS (4)
  1. ERBITUX [Suspect]
     Active Substance: CETUXIMAB
     Indication: Product used for unknown indication
     Dosage: UNK, 2/M, EVERY 2 WEEKS
     Route: 065
  2. BRAFTOVI [Suspect]
     Active Substance: ENCORAFENIB
     Indication: Colon cancer
     Dosage: 4 DOSAGE FORM, DAILY
     Route: 048
     Dates: start: 202406
  3. BRAFTOVI [Suspect]
     Active Substance: ENCORAFENIB
     Dosage: 2 DOSAGE FORM, DAILY
     Route: 048
     Dates: start: 202408
  4. OPDIVO [Concomitant]
     Active Substance: NIVOLUMAB
     Indication: Product used for unknown indication

REACTIONS (3)
  - Pain in extremity [Unknown]
  - Off label use [Unknown]
  - Asthenia [Unknown]

NARRATIVE: CASE EVENT DATE: 20250130
